FAERS Safety Report 25662307 (Version 1)
Quarter: 2025Q3

REPORT INFORMATION
  Report Type: Spontaneous
  Country: JP (occurrence: JP)
  Receive Date: 20250810
  Receipt Date: 20250810
  Transmission Date: 20251020
  Serious: Yes (Other)
  Sender: ALEXION PHARMACEUTICALS
  Company Number: JP-ASTRAZENECA-240104191_013120_P_1

PATIENT
  Age: 69 Year
  Sex: Female

DRUGS (1)
  1. DURVALUMAB [Suspect]
     Active Substance: DURVALUMAB
     Indication: Non-small cell lung cancer
     Dates: start: 202202, end: 2023

REACTIONS (1)
  - Non-small cell lung cancer recurrent [Unknown]

NARRATIVE: CASE EVENT DATE: 20230714
